FAERS Safety Report 15537320 (Version 1)
Quarter: 2018Q4

REPORT INFORMATION
  Report Type: Spontaneous
  Country: US (occurrence: US)
  Receive Date: 20181022
  Receipt Date: 20181022
  Transmission Date: 20190205
  Serious: No
  Sender: FDA-Public Use
  Company Number: None

PATIENT
  Age: 22 Year
  Sex: Female
  Weight: 51.75 kg

DRUGS (4)
  1. DIFLUCAN [Concomitant]
     Active Substance: FLUCONAZOLE
  2. METRONIDAZOLE. [Concomitant]
     Active Substance: METRONIDAZOLE
  3. PROBIOTICS [Concomitant]
     Active Substance: PROBIOTICS NOS
  4. FLAGYL [Suspect]
     Active Substance: METRONIDAZOLE\METRONIDAZOLE HYDROCHLORIDE
     Indication: BACTERIAL VAGINOSIS
     Dosage: ?          QUANTITY:1 TABLET(S);?
     Route: 048
     Dates: start: 20181019, end: 20181021

REACTIONS (14)
  - Fatigue [None]
  - Abdominal pain [None]
  - Heart rate increased [None]
  - Dizziness [None]
  - Confusional state [None]
  - Abdominal pain upper [None]
  - Abdominal distension [None]
  - Flushing [None]
  - Dry mouth [None]
  - Nausea [None]
  - Adverse food reaction [None]
  - Retching [None]
  - Vomiting [None]
  - Diarrhoea [None]

NARRATIVE: CASE EVENT DATE: 20181021
